FAERS Safety Report 8537214-5 (Version None)
Quarter: 2012Q3

REPORT INFORMATION
  Report Type: 
  Country: None (occurrence: None)
  Receive Date: 20120725
  Receipt Date: 20120719
  Transmission Date: 20120928
  Serious: Yes (Hospitalization, Other)
  Sender: FDA-Public Use
  Company Number: US-ACTELION-A-NJ2012-68537

PATIENT

DRUGS (3)
  1. VENTAVIS [Suspect]
     Indication: PULMONARY ARTERIAL HYPERTENSION
     Dosage: UNK
     Route: 055
  2. ASPIRIN [Concomitant]
  3. LETAIRIS [Concomitant]

REACTIONS (7)
  - HAEMOGLOBIN DECREASED [None]
  - BIOPSY BONE MARROW [None]
  - GLOSSODYNIA [None]
  - DYSPNOEA [None]
  - ANAEMIA [None]
  - INSOMNIA [None]
  - CONSTIPATION [None]
